FAERS Safety Report 5142498-X (Version None)
Quarter: 2006Q4

REPORT INFORMATION
  Report Type: 
  Country: None (occurrence: None)
  Receive Date: 20061102
  Receipt Date: 20061026
  Transmission Date: 20070319
  Serious: Yes (Hospitalization)
  Sender: FDA-Public Use
  Company Number: US-SANOFI-SYNTHELABO-F03200600240

PATIENT
  Sex: Male
  Weight: 93.4 kg

DRUGS (11)
  1. OXALIPLATIN [Suspect]
     Indication: NEUROENDOCRINE TUMOUR
     Dosage: 170 MG (85 MG/M2) EVERY TWO WEEKS
     Route: 042
     Dates: start: 20060927, end: 20060927
  2. BEVACIZUMAB [Suspect]
     Indication: NEUROENDOCRINE TUMOUR
     Dosage: 435 MG (5 MG/KG) EVERY TWO WEEKS
     Route: 042
     Dates: start: 20060927, end: 20060927
  3. FLUOROURACIL [Suspect]
     Indication: NEUROENDOCRINE TUMOUR
     Dosage: 4800 MG (1200 MG/M2/DAY) EVERY TWO WEEKS
     Route: 042
     Dates: start: 20060927, end: 20060927
  4. LEUCOVORIN [Suspect]
     Indication: NEUROENDOCRINE TUMOUR
     Dosage: 400 MG (200 MG/M2) EVERY TWO WEEKS
     Route: 042
     Dates: start: 20060927, end: 20060927
  5. LOMOTIL [Concomitant]
     Route: 048
  6. IMODIUM [Concomitant]
     Route: 048
  7. ARANESP [Concomitant]
     Route: 058
  8. SPIRONOLACTONE [Concomitant]
     Route: 048
  9. ACYCLOVIR [Concomitant]
     Route: 048
  10. LASIX [Concomitant]
     Route: 065
  11. SANDOSTATIN LAR [Concomitant]
     Route: 065

REACTIONS (4)
  - ASCITES [None]
  - DISEASE PROGRESSION [None]
  - FAILURE TO THRIVE [None]
  - LIVER FUNCTION TEST ABNORMAL [None]
